FAERS Safety Report 7587099-9 (Version None)
Quarter: 2011Q3

REPORT INFORMATION
  Report Type: 
  Country: None (occurrence: None)
  Receive Date: 20110701
  Receipt Date: 20110625
  Transmission Date: 20111222
  Serious: Yes (Hospitalization)
  Sender: FDA-Public Use
  Company Number: PHHO2011CA10980

PATIENT
  Sex: Female
  Weight: 104.76 kg

DRUGS (1)
  1. FTY [Suspect]
     Indication: MULTIPLE SCLEROSIS
     Dosage: 0.5 MG, QD
     Route: 048
     Dates: start: 20110408

REACTIONS (1)
  - ABDOMINAL HERNIA [None]
